FAERS Safety Report 5803040-0 (Version None)
Quarter: 2008Q3

REPORT INFORMATION
  Report Type: 
  Country: None (occurrence: None)
  Receive Date: 20080708
  Receipt Date: 20080627
  Transmission Date: 20090109
  Serious: Yes (Hospitalization)
  Sender: FDA-Public Use
  Company Number: US-JNJFOC-20080606817

PATIENT
  Sex: Female

DRUGS (1)
  1. DURAGESIC-100 [Suspect]
     Indication: CANCER PAIN
     Dosage: 3X 100UG/HR PATCHES
     Route: 062

REACTIONS (3)
  - BODY HEIGHT DECREASED [None]
  - HOSPITALISATION [None]
  - MULTIPLE MYELOMA [None]
